FAERS Safety Report 7804531-3 (Version None)
Quarter: 2011Q4

REPORT INFORMATION
  Report Type: 
  Country: None (occurrence: None)
  Receive Date: 20111010
  Receipt Date: 20111003
  Transmission Date: 20120403
  Serious: Yes (Hospitalization)
  Sender: FDA-Public Use
  Company Number: US-VERTEX PHARMACEUTICALS INC.-AE-2011-000971

PATIENT
  Sex: Female
  Weight: 86.26 kg

DRUGS (12)
  1. RIBAVIRIN [Concomitant]
     Indication: HEPATITIS C
     Route: 048
     Dates: start: 20110727, end: 20110921
  2. PRILOSEC [Concomitant]
  3. NAPROXEN [Concomitant]
  4. ASPIRIN [Concomitant]
  5. PEGASYS [Concomitant]
     Indication: HEPATITIS C
     Dates: start: 20110727, end: 20110921
  6. AMLODIPINE BESYLATE [Concomitant]
  7. NITROSTAT [Concomitant]
  8. CLONIDINE [Concomitant]
  9. CARVEDILOL [Concomitant]
  10. PROAIR HFA [Concomitant]
  11. LOSARTAN POTASSIUM [Concomitant]
  12. INCIVEK [Suspect]
     Indication: HEPATITIS C
     Route: 048
     Dates: start: 20110727, end: 20110921

REACTIONS (2)
  - DEHYDRATION [None]
  - RENAL FAILURE ACUTE [None]
